FAERS Safety Report 7611725-9 (Version None)
Quarter: 2011Q3

REPORT INFORMATION
  Report Type: 
  Country: None (occurrence: None)
  Receive Date: 20110715
  Receipt Date: 20110705
  Transmission Date: 20111222
  Serious: Yes (Death, Hospitalization, Other)
  Sender: FDA-Public Use
  Company Number: RU-SANOFI-AVENTIS-2011SA043767

PATIENT
  Age: 75 Year
  Sex: Male
  Weight: 97 kg

DRUGS (5)
  1. FUROSEMIDE [Concomitant]
     Route: 065
  2. DRONEDARONE HCL [Suspect]
     Indication: ATRIAL FIBRILLATION
     Route: 048
     Dates: start: 20101214, end: 20110523
  3. BISOPROLOL [Concomitant]
     Route: 065
  4. RAMIPRIL [Concomitant]
     Route: 065
  5. ASPIRIN [Concomitant]
     Route: 065

REACTIONS (4)
  - CARDIAC FAILURE [None]
  - HYPERTROPHIC CARDIOMYOPATHY [None]
  - PULMONARY EMBOLISM [None]
  - GASTROINTESTINAL CARCINOMA [None]
